FAERS Safety Report 9855089 (Version 1)
Quarter: 2013Q4

REPORT INFORMATION
  Report Type: Spontaneous
  Country: US (occurrence: None)
  Receive Date: 20131226
  Receipt Date: 20131226
  Transmission Date: 20140711
  Serious: Yes (Other)
  Sender: FDA-Public Use
  Company Number: PHEH2012US007316

PATIENT
  Age: 53 Year
  Sex: Female

DRUGS (9)
  1. AFINITOR (RAD) TABLET, 10MG [Suspect]
  2. AMBIEN (ZOLPIDEM TARTRATE) [Concomitant]
  3. ZOLPIDEM (SERTRALINE HYDROCHLORIDE) [Concomitant]
  4. EXEMESTANE (EXEMESTANE) [Concomitant]
  5. LYRICA (PREGABALIN ) [Concomitant]
  6. SYNTHROID (LEVOTHYROXINE SODIUM) [Concomitant]
  7. FENTANYL (FENTANYL) [Concomitant]
  8. HYDROXYCHLOROQUINE (HYDROXYCHLOROQUINE) [Concomitant]
  9. NARCOF [Concomitant]

REACTIONS (8)
  - Pneumonia [None]
  - Lip swelling [None]
  - Lip pain [None]
  - Alopecia [None]
  - Dizziness [None]
  - Epistaxis [None]
  - Fatigue [None]
  - Stomatitis [None]
